FAERS Safety Report 8849282 (Version 1)
Quarter: 2012Q4

REPORT INFORMATION
  Report Type: 
  Country: US (occurrence: US)
  Receive Date: 20121019
  Receipt Date: 20121019
  Transmission Date: 20130627
  Serious: Yes (Other)
  Sender: FDA-Public Use
  Company Number: US-MERCK-2012SP021886

PATIENT
  Sex: Female

DRUGS (3)
  1. PEG-INTRON [Suspect]
     Indication: HEPATITIS C
     Dosage: 80 ?g, QW
     Route: 065
     Dates: start: 20111108, end: 20120814
  2. REBETOL [Suspect]
     Indication: HEPATITIS C
     Dosage: UNK UNK, Unknown
     Route: 065
     Dates: start: 20111108, end: 20120814
  3. VICTRELIS [Suspect]
     Indication: HEPATITIS C
     Dosage: UNK UNK, Unknown
     Route: 065
     Dates: start: 20111207, end: 20120814

REACTIONS (14)
  - Weight decreased [Unknown]
  - Blood potassium decreased [Unknown]
  - Frustration [Unknown]
  - Lip discolouration [Unknown]
  - Eczema [Unknown]
  - Anger [Unknown]
  - Dysgeusia [Unknown]
  - Dry mouth [Unknown]
  - Dry skin [Unknown]
  - Memory impairment [Unknown]
  - Stomatitis [Unknown]
  - Decreased appetite [Unknown]
  - Vomiting [Unknown]
  - Alopecia [Unknown]
